FAERS Safety Report 10690255 (Version 2)
Quarter: 2015Q1

REPORT INFORMATION
  Report Type: Spontaneous
  Country: US (occurrence: US)
  Receive Date: 20150105
  Receipt Date: 20150116
  Transmission Date: 20150720
  Serious: Yes (Hospitalization, Other)
  Sender: FDA-Public Use
  Company Number: US-DYAX CORP.-2014DX000380

PATIENT
  Age: 44 Year
  Sex: Female

DRUGS (3)
  1. KALBITOR [Suspect]
     Active Substance: ECALLANTIDE
     Route: 058
     Dates: start: 201412, end: 201412
  2. KALBITOR [Suspect]
     Active Substance: ECALLANTIDE
     Route: 058
  3. KALBITOR [Suspect]
     Active Substance: ECALLANTIDE
     Indication: HEREDITARY ANGIOEDEMA
     Route: 058
     Dates: start: 20141221, end: 20141221

REACTIONS (10)
  - Anaphylactic reaction [Unknown]
  - Hereditary angioedema [Unknown]
  - Pain [Unknown]
  - Throat irritation [Unknown]
  - Paraesthesia oral [Unknown]
  - Crying [Unknown]
  - Pruritus [Recovered/Resolved]
  - Emotional distress [Unknown]
  - Stress [Unknown]
  - Therapeutic response decreased [Unknown]

NARRATIVE: CASE EVENT DATE: 201412
